FAERS Safety Report 25652680 (Version 1)
Quarter: 2025Q3

REPORT INFORMATION
  Report Type: Spontaneous
  Country: US (occurrence: US)
  Receive Date: 20250807
  Receipt Date: 20250807
  Transmission Date: 20251021
  Serious: No
  Sender: ELI LILLY AND COMPANY
  Company Number: US-ELI_LILLY_AND_COMPANY-US202508002994

PATIENT
  Age: 18 Year
  Sex: Female

DRUGS (1)
  1. LYUMJEV [Suspect]
     Active Substance: INSULIN LISPRO-AABC
     Indication: Product used for unknown indication
     Route: 065

REACTIONS (4)
  - Infusion site infection [Unknown]
  - Product dose omission issue [Unknown]
  - Infusion site irritation [Unknown]
  - Infusion site mass [Unknown]
